FAERS Safety Report 6774621-5 (Version None)
Quarter: 2010Q2

REPORT INFORMATION
  Report Type: 
  Country: None (occurrence: None)
  Receive Date: 20100617
  Receipt Date: 20100610
  Transmission Date: 20101027
  Serious: Yes (Hospitalization)
  Sender: FDA-Public Use
  Company Number: BR-ROCHE-692119

PATIENT
  Age: 41 Year
  Sex: Female
  Weight: 54 kg

DRUGS (2)
  1. PEGASYS [Suspect]
     Indication: HEPATITIS C
     Dosage: FORMULATION REPORTED AS 'INFUSION'
     Route: 065
     Dates: start: 20091201, end: 20091201
  2. RIBAVIRIN [Concomitant]
     Indication: HEPATITIS C

REACTIONS (3)
  - PAIN [None]
  - TROCHANTERIC SYNDROME [None]
  - WEIGHT INCREASED [None]
